FAERS Safety Report 13194901 (Version 2)
Quarter: 2017Q2

REPORT INFORMATION
  Report Type: Report from Study
  Country: None (occurrence: BR)
  Receive Date: 20170207
  Receipt Date: 20170524
  Transmission Date: 20170830
  Serious: Yes (Other)
  Sender: FDA-Public Use
  Company Number: BR-ABBVIE-17P-020-1864993-00

PATIENT
  Age: 74 Year
  Sex: Male
  Weight: 110 kg

DRUGS (9)
  1. SYNTHROID [Suspect]
     Active Substance: LEVOTHYROXINE SODIUM
     Route: 048
  2. OMEPRAZOLE. [Concomitant]
     Active Substance: OMEPRAZOLE
     Indication: PRODUCT USED FOR UNKNOWN INDICATION
  3. SYNTHROID [Suspect]
     Active Substance: LEVOTHYROXINE SODIUM
     Dosage: DAILY DOSE: ^1^, MORNING
     Route: 048
     Dates: start: 1997
  4. OMEPRAZOLE. [Concomitant]
     Active Substance: OMEPRAZOLE
     Indication: HYPERCHLORHYDRIA
     Dosage: DAILY DOSE: ^1^
     Route: 065
     Dates: start: 2002
  5. PYCNOGENOL [Concomitant]
     Active Substance: DIETARY SUPPLEMENT
     Indication: ANTIOXIDANT THERAPY
     Dosage: FORM STRENGTH: 50MG/50MGDAILY DOSE: ^2^
     Route: 065
  6. TURMERIC [Concomitant]
     Active Substance: HERBALS\TURMERIC
     Indication: ANTIOXIDANT THERAPY
     Dosage: FORM STRENGTH: 50MG/50MG?DAILY DOSE: ^2^
     Route: 065
  7. SYNTHROID [Suspect]
     Active Substance: LEVOTHYROXINE SODIUM
     Indication: THYROIDECTOMY
     Dosage: DOSE: 2 TABLETS OF SYNTHROID 88MCG
     Route: 065
  8. OMEPRAZOLE. [Concomitant]
     Active Substance: OMEPRAZOLE
     Indication: PRODUCT USED FOR UNKNOWN INDICATION
  9. CENTRUM [Concomitant]
     Active Substance: VITAMINS
     Indication: VITAMIN SUPPLEMENTATION
     Dosage: DAILY DOSE: ^1^
     Route: 065

REACTIONS (8)
  - Insomnia [Recovered/Resolved]
  - Hypertension [Unknown]
  - IIIrd nerve paralysis [Recovering/Resolving]
  - Eye pain [Unknown]
  - Cerebrovascular accident [Recovered/Resolved]
  - Diplopia [Unknown]
  - Product use issue [Recovered/Resolved]
  - Strabismus [Recovering/Resolving]

NARRATIVE: CASE EVENT DATE: 2002
